FAERS Safety Report 17823493 (Version 1)
Quarter: 2020Q2

REPORT INFORMATION
  Report Type: Spontaneous
  Country: PE (occurrence: PE)
  Receive Date: 20200526
  Receipt Date: 20200526
  Transmission Date: 20200714
  Serious: Yes (Hospitalization)
  Sender: FDA-Public Use
  Company Number: PE-009507513-2005PER007146

PATIENT
  Age: 83 Year
  Sex: Male
  Weight: 70 kg

DRUGS (3)
  1. PENICILLIN (UNSPECIFIED) [Concomitant]
     Active Substance: PENICILLIN
     Indication: SUSPECTED COVID-19
     Dosage: UNK
  2. IVERMECTIN. [Suspect]
     Active Substance: IVERMECTIN
     Indication: SUSPECTED COVID-19
     Dosage: 70 DROPS PER DAY
  3. IVERMECTIN. [Suspect]
     Active Substance: IVERMECTIN
     Dosage: 100 DROPS (DAY FIFHT)

REACTIONS (5)
  - Off label use [Unknown]
  - Drug ineffective for unapproved indication [Unknown]
  - Diarrhoea [Unknown]
  - Viral load increased [Not Recovered/Not Resolved]
  - Lung infiltration [Unknown]
